FAERS Safety Report 7733397-5 (Version None)
Quarter: 2011Q3

REPORT INFORMATION
  Report Type: 
  Country: None (occurrence: None)
  Receive Date: 20110902
  Receipt Date: 20110902
  Transmission Date: 20111222
  Serious: No
  Sender: FDA-Public Use
  Company Number: None

PATIENT
  Age: 81 Year
  Sex: Female
  Weight: 65.7716 kg

DRUGS (4)
  1. TIZANIDINE HCL [Suspect]
     Indication: SCIATICA
     Dosage: 1/4 TO 1/2 TABLET 4 TIMES A DAY   2 DOSES
     Dates: start: 20110718, end: 20110802
  2. TIZANIDINE HCL [Suspect]
     Indication: MUSCULOSKELETAL PAIN
     Dosage: 1/4 TO 1/2 TABLET 4 TIMES A DAY   2 DOSES
     Dates: start: 20110718, end: 20110802
  3. TIZANIDINE HCL [Suspect]
     Indication: SCIATICA
     Dosage: 1/4 TO 1/2 TABLET 4 TIMES A DAY   2 DOSES
     Dates: start: 20110816
  4. TIZANIDINE HCL [Suspect]
     Indication: MUSCULOSKELETAL PAIN
     Dosage: 1/4 TO 1/2 TABLET 4 TIMES A DAY   2 DOSES
     Dates: start: 20110816

REACTIONS (3)
  - PYREXIA [None]
  - CHILLS [None]
  - ASTHENIA [None]
